FAERS Safety Report 12332047 (Version 6)
Quarter: 2016Q3

REPORT INFORMATION
  Report Type: Spontaneous
  Country: US (occurrence: US)
  Receive Date: 20160504
  Receipt Date: 20160729
  Transmission Date: 20161109
  Serious: No
  Sender: FDA-Public Use
  Company Number: US-PFIZER INC-2016238797

PATIENT
  Age: 38 Year
  Sex: Male
  Weight: 53 kg

DRUGS (4)
  1. SUTENT [Suspect]
     Active Substance: SUNITINIB MALATE
     Indication: METASTATIC RENAL CELL CARCINOMA
     Dosage: 50 MG, CYCLIC (28 DAYS ON/14 DAYS OFF)
     Dates: start: 20160422, end: 20160711
  2. TYLENOL [Concomitant]
     Active Substance: ACETAMINOPHEN
  3. ALLEGRA [Concomitant]
     Active Substance: FEXOFENADINE HYDROCHLORIDE
     Dosage: UNK
  4. OXYCONTIN [Concomitant]
     Active Substance: OXYCODONE HYDROCHLORIDE
     Dosage: UNK

REACTIONS (24)
  - Glossodynia [Unknown]
  - Nasal dryness [Unknown]
  - Acne [Unknown]
  - Peripheral swelling [Unknown]
  - Pain in extremity [Unknown]
  - Headache [Unknown]
  - Dry mouth [Unknown]
  - Pain [Not Recovered/Not Resolved]
  - Increased appetite [Unknown]
  - Back pain [Not Recovered/Not Resolved]
  - Ageusia [Not Recovered/Not Resolved]
  - Oral discomfort [Unknown]
  - Tongue discomfort [Unknown]
  - Pain in extremity [Recovered/Resolved]
  - Hair colour changes [Unknown]
  - Heart rate increased [Unknown]
  - Musculoskeletal pain [Recovered/Resolved]
  - Fatigue [Not Recovered/Not Resolved]
  - Chromaturia [Unknown]
  - Disturbance in attention [Unknown]
  - Night sweats [Unknown]
  - Cough [Not Recovered/Not Resolved]
  - Memory impairment [Unknown]
  - Neck pain [Recovered/Resolved]
